FAERS Safety Report 8740392 (Version 2)
Quarter: 2013Q2

REPORT INFORMATION
  Report Type: Spontaneous
  Country: US (occurrence: US)
  Receive Date: 20120823
  Receipt Date: 20130408
  Transmission Date: 20140414
  Serious: No
  Sender: FDA-Public Use
  Company Number: US-009507513-1208USA004657

PATIENT
  Sex: Male

DRUGS (1)
  1. ZIOPTAN [Suspect]
     Indication: GLAUCOMA
     Dosage: ONE DROP IN THE EVENING
     Route: 047
     Dates: start: 201209

REACTIONS (4)
  - Cough [Not Recovered/Not Resolved]
  - Muscular weakness [Unknown]
  - Muscle spasms [Unknown]
  - Underdose [Unknown]
